FAERS Safety Report 7944592-4 (Version None)
Quarter: 2011Q4

REPORT INFORMATION
  Report Type: 
  Country: None (occurrence: None)
  Receive Date: 20111122
  Receipt Date: 20110706
  Transmission Date: 20120403
  Serious: Yes (Other)
  Sender: FDA-Public Use
  Company Number: PHHY2011US10849

PATIENT
  Age: 48 Year
  Sex: Female
  Weight: 54.4 kg

DRUGS (7)
  1. TRAZODONE HCL [Concomitant]
  2. GILENYA [Suspect]
     Indication: MULTIPLE SCLEROSIS
     Dosage: 0.5 MG, QD, ORAL
     Route: 048
     Dates: start: 20110204
  3. PREDNISONE TAB [Concomitant]
  4. GABAPENTIN [Concomitant]
  5. PROVIGIL [Concomitant]
  6. COPAXONE [Concomitant]
  7. DEPAKOTE [Concomitant]

REACTIONS (7)
  - HEART RATE INCREASED [None]
  - BACK PAIN [None]
  - VISION BLURRED [None]
  - MULTIPLE SCLEROSIS RELAPSE [None]
  - LIP PAIN [None]
  - HYPOAESTHESIA [None]
  - PAIN IN EXTREMITY [None]
